FAERS Safety Report 24069329 (Version 2)
Quarter: 2024Q3

REPORT INFORMATION
  Report Type: Report from Study
  Country: CL (occurrence: CL)
  Receive Date: 20240710
  Receipt Date: 20240710
  Transmission Date: 20241016
  Serious: No
  Sender: ROCHE
  Company Number: CL-ROCHE-3371553

PATIENT
  Age: 54 Year
  Sex: Female
  Weight: 84.0 kg

DRUGS (4)
  1. ALECTINIB [Suspect]
     Active Substance: ALECTINIB
     Indication: Lung cancer metastatic
     Route: 048
     Dates: start: 20220915
  2. ALECTINIB [Suspect]
     Active Substance: ALECTINIB
     Route: 065
     Dates: start: 20220628
  3. LOSARTAN [Concomitant]
     Active Substance: LOSARTAN
     Route: 048
     Dates: start: 20220610
  4. METFORMIN HYDROCHLORIDE [Concomitant]
     Active Substance: METFORMIN HYDROCHLORIDE
     Route: 048
     Dates: start: 20220607

REACTIONS (1)
  - Hypertransaminasaemia [Recovered/Resolved]

NARRATIVE: CASE EVENT DATE: 20230615
